FAERS Safety Report 7170871-7 (Version None)
Quarter: 2010Q4

REPORT INFORMATION
  Report Type: 
  Country: None (occurrence: None)
  Receive Date: 20101206
  Receipt Date: 20101129
  Transmission Date: 20110411
  Serious: Yes (Other)
  Sender: FDA-Public Use
  Company Number: 20108702

PATIENT
  Age: 36 Year
  Sex: Female

DRUGS (1)
  1. BACLOFEN [Suspect]
     Indication: MUSCLE SPASTICITY
     Dosage: MCG,DAILY, INTRATHECAL
     Route: 037

REACTIONS (7)
  - DEVICE CONNECTION ISSUE [None]
  - FOREIGN BODY REACTION [None]
  - IMPLANT SITE EFFUSION [None]
  - INFECTION [None]
  - INTRACRANIAL HYPOTENSION [None]
  - MOVEMENT DISORDER [None]
  - MUSCLE SPASMS [None]
